FAERS Safety Report 24601948 (Version 1)
Quarter: 2024Q4

REPORT INFORMATION
  Report Type: Spontaneous
  Country: US (occurrence: US)
  Receive Date: 20241111
  Receipt Date: 20241111
  Transmission Date: 20250115
  Serious: Yes (Other)
  Sender: MEDICURE INTERNATIONAL INC
  Company Number: US-MEDICUREINC-2024USSPO00032

PATIENT
  Sex: Male
  Weight: 98 kg

DRUGS (1)
  1. AGGRASTAT [Suspect]
     Active Substance: TIROFIBAN HYDROCHLORIDE
     Indication: Thrombectomy
     Dates: start: 20241007

REACTIONS (1)
  - Haemorrhage intracranial [Unknown]

NARRATIVE: CASE EVENT DATE: 20241007
